FAERS Safety Report 11269022 (Version 1)
Quarter: 2015Q3

REPORT INFORMATION
  Report Type: Spontaneous
  Country: US (occurrence: US)
  Receive Date: 20150714
  Receipt Date: 20150714
  Transmission Date: 20151125
  Serious: No
  Sender: FDA-Public Use
  Company Number: PHEH2014US016668

PATIENT
  Sex: Female

DRUGS (2)
  1. VALSARTAN. [Suspect]
     Active Substance: VALSARTAN
     Dosage: 320 MG, UNK
  2. VALSARTAN. [Suspect]
     Active Substance: VALSARTAN
     Dosage: 0.5 DF, QD

REACTIONS (1)
  - Wrong technique in product usage process [Unknown]
